FAERS Safety Report 22936360 (Version 2)
Quarter: 2023Q4

REPORT INFORMATION
  Report Type: Spontaneous
  Country: DE (occurrence: DE)
  Receive Date: 20230912
  Receipt Date: 20231125
  Transmission Date: 20240110
  Serious: Yes (Hospitalization, Other)
  Sender: FDA-Public Use
  Company Number: DE-BAYER-2023A125681

PATIENT
  Age: 47 Year
  Sex: Female

DRUGS (1)
  1. MIRENA [Suspect]
     Active Substance: LEVONORGESTREL
     Dosage: 20?G/DAY
     Route: 015
     Dates: start: 20230315, end: 20230828

REACTIONS (5)
  - Cholangiocarcinoma [Not Recovered/Not Resolved]
  - Intermenstrual bleeding [None]
  - Abdominal pain [None]
  - Back pain [None]
  - General physical health deterioration [Not Recovered/Not Resolved]

NARRATIVE: CASE EVENT DATE: 20230811
